FAERS Safety Report 16008183 (Version 1)
Quarter: 2019Q1

REPORT INFORMATION
  Report Type: Spontaneous
  Country: FR (occurrence: FR)
  Receive Date: 20190226
  Receipt Date: 20190226
  Transmission Date: 20190418
  Serious: Yes (Other)
  Sender: FDA-Public Use
  Company Number: FR-TEVA-2019-FR-1015526

PATIENT
  Age: 65 Year
  Sex: Male
  Weight: 68 kg

DRUGS (2)
  1. CISPLATINE [Suspect]
     Active Substance: CISPLATIN
     Indication: ADENOCARCINOMA
     Route: 042
     Dates: start: 20130702, end: 20130820
  2. ALIMTA [Suspect]
     Active Substance: PEMETREXED DISODIUM
     Indication: ADENOCARCINOMA
     Route: 042
     Dates: start: 20130702

REACTIONS (1)
  - Acute kidney injury [Not Recovered/Not Resolved]

NARRATIVE: CASE EVENT DATE: 20130820
